FAERS Safety Report 9898415 (Version 2)
Quarter: 2014Q1

REPORT INFORMATION
  Report Type: Spontaneous
  Country: US (occurrence: US)
  Receive Date: 20140214
  Receipt Date: 20140307
  Transmission Date: 20141002
  Serious: Yes (Other)
  Sender: FDA-Public Use
  Company Number: US-PFIZER INC-2014038968

PATIENT
  Age: 76 Year
  Sex: Male
  Weight: 93 kg

DRUGS (15)
  1. SUTENT [Suspect]
     Indication: GASTROINTESTINAL STROMAL TUMOUR
     Dosage: 50 MG, CYCLIC (DAILY FOR 14 DAYS ON AND OFF 7, ON 14 AND OFF 7 (6 WEEKS CYCLES)) CYCLE 1
     Route: 048
     Dates: start: 20100907
  2. SUTENT [Suspect]
     Dosage: 50 MG, CYCLIC (DAILY FOR 14 DAYS ON AND OFF 7, ON 14 AND OFF 7 (6 WEEKS CYCLES)) CYCLE 3
     Route: 048
     Dates: start: 20101201, end: 20101207
  3. SUTENT [Suspect]
     Dosage: UNK, CYCLIC (CYCLE 3 WAS RESUMED)
     Route: 048
     Dates: start: 20110121
  4. SUTENT [Suspect]
     Dosage: 50 MG, CYCLIC (DAILY FOR 14 DAYS, OFF 7, AND ON 14, OFF 7 (6 WEEKS CYCLE)) CYCLE 4
     Route: 048
     Dates: start: 20111101
  5. SUTENT [Suspect]
     Dosage: UNK, CYCLIC (RESUMED)
     Route: 048
     Dates: start: 20111128, end: 20111208
  6. ALEVE [Concomitant]
     Dosage: UNK, AS NEEDED
  7. ASPIRIN [Concomitant]
     Dosage: 81 MG, DAILY
  8. CALCIUM [Concomitant]
     Dosage: UNK, DAILY
  9. FISH OIL [Concomitant]
     Dosage: UNK
  10. GLUCOSAMINE [Concomitant]
     Dosage: UNK, 1X/DAY
  11. SYNTHROID [Concomitant]
     Dosage: 50 UG, DAILY
  12. METOPROLOL TARTRATE [Concomitant]
     Dosage: 25 MG, 2X/DAY
  13. TYLENOL [Concomitant]
     Dosage: UNK, AS NEEDED
  14. VITAMIN C [Concomitant]
     Dosage: UNK, DAILY
  15. VESICARE [Concomitant]
     Dosage: 5 MG, DAILY

REACTIONS (9)
  - Postoperative wound infection [Unknown]
  - Renal failure acute [Unknown]
  - Hypertension [Unknown]
  - Rib fracture [Unknown]
  - Impaired healing [Unknown]
  - Tooth disorder [Unknown]
  - White blood cell count decreased [Unknown]
  - Fall [Unknown]
  - Joint injury [Unknown]
